FAERS Safety Report 16531198 (Version 1)
Quarter: 2019Q3

REPORT INFORMATION
  Report Type: Other
  Country: CA (occurrence: CA)
  Receive Date: 20190704
  Receipt Date: 20190704
  Transmission Date: 20191004
  Serious: Yes (Hospitalization, Other)
  Sender: FDA-Public Use
  Company Number: CA-APOTEX-2019AP017383

PATIENT
  Age: 81 Year
  Sex: Female

DRUGS (1)
  1. GEMCITABINE. [Suspect]
     Active Substance: GEMCITABINE
     Indication: UTERINE CANCER
     Dosage: UNK CYCLICAL
     Route: 065

REACTIONS (8)
  - Pyrexia [Unknown]
  - Hypotension [Unknown]
  - Systemic inflammatory response syndrome [Unknown]
  - Product use in unapproved indication [Unknown]
  - Tachycardia [Unknown]
  - Off label use [Unknown]
  - Vomiting [Unknown]
  - Diarrhoea [Unknown]
